FAERS Safety Report 21944563 (Version 1)
Quarter: 2023Q1

REPORT INFORMATION
  Report Type: Other
  Country: US (occurrence: None)
  Receive Date: 20230202
  Receipt Date: 20230202
  Transmission Date: 20230417
  Serious: No
  Sender: FDA-Public Use
  Company Number: US-ROCHE-3276226

PATIENT
  Age: 32 Year
  Sex: Male

DRUGS (8)
  1. OCREVUS [Suspect]
     Active Substance: OCRELIZUMAB
     Indication: Primary progressive multiple sclerosis
     Dosage: 300 MG ON DAY 1 AND DAY 14, 600 MG EVERY SIX MONTHS
     Route: 042
     Dates: start: 20220922
  2. DICLOFENAC [Concomitant]
     Active Substance: DICLOFENAC
  3. DULOXETINE [Concomitant]
     Active Substance: DULOXETINE
  4. KETOCONAZOLE [Concomitant]
     Active Substance: KETOCONAZOLE
  5. PANTOPRAZOLE [Concomitant]
     Active Substance: PANTOPRAZOLE
  6. SOLIFENACIN [Concomitant]
     Active Substance: SOLIFENACIN
  7. VALTREX [Concomitant]
     Active Substance: VALACYCLOVIR HYDROCHLORIDE
  8. ERGOCALCIFEROL [Concomitant]
     Active Substance: ERGOCALCIFEROL

REACTIONS (3)
  - Neuralgia [Unknown]
  - Mood swings [Unknown]
  - Oral herpes [Unknown]
